FAERS Safety Report 11801571 (Version 2)
Quarter: 2015Q4

REPORT INFORMATION
  Report Type: Spontaneous
  Country: US (occurrence: US)
  Receive Date: 20151204
  Receipt Date: 20151229
  Transmission Date: 20160305
  Serious: No
  Sender: FDA-Public Use
  Company Number: US-PFIZER INC-2015328631

PATIENT
  Age: 18 Year
  Sex: Female

DRUGS (6)
  1. HYOSCYAMINE. [Concomitant]
     Active Substance: HYOSCYAMINE
     Indication: ABDOMINAL PAIN
     Dosage: 0.125 MG, UNK
  2. CLARITIN [Concomitant]
     Active Substance: LORATADINE
     Indication: HYPERSENSITIVITY
     Dosage: 10 MG, DAILY
  3. CHAPSTICK CLASSIC ORIGINAL [Suspect]
     Active Substance: PETROLATUM
     Indication: DRY SKIN PROPHYLAXIS
     Dosage: JUST ONE APPLICATION
     Dates: start: 20150930, end: 20150930
  4. CHAPSTICK CLASSIC ORIGINAL [Suspect]
     Active Substance: PETROLATUM
     Indication: CHAPPED LIPS
  5. LO/OVRAL-28 [Concomitant]
     Active Substance: ETHINYL ESTRADIOL\NORGESTREL
     Indication: ENDOMETRIOSIS
     Dosage: UNK (0.3-30)
  6. FERROUS SULFATE [Concomitant]
     Active Substance: FERROUS SULFATE\FERROUS SULFATE, DRIED
     Indication: ANAEMIA
     Dosage: 325 MG, DAILY

REACTIONS (13)
  - Lip dry [Unknown]
  - Malaise [Recovered/Resolved]
  - Anxiety [Unknown]
  - Lip disorder [Recovered/Resolved with Sequelae]
  - Lip swelling [Recovered/Resolved]
  - Lip pain [Unknown]
  - Salivary hypersecretion [Unknown]
  - Cheilitis [Not Recovered/Not Resolved]
  - Chapped lips [Unknown]
  - Panic reaction [Unknown]
  - Oral discomfort [Recovered/Resolved with Sequelae]
  - Lip exfoliation [Not Recovered/Not Resolved]
  - Choking sensation [Unknown]

NARRATIVE: CASE EVENT DATE: 2015
